FAERS Safety Report 25607209 (Version 1)
Quarter: 2025Q3

REPORT INFORMATION
  Report Type: Spontaneous
  Country: JP (occurrence: JP)
  Receive Date: 20250725
  Receipt Date: 20250725
  Transmission Date: 20251020
  Serious: Yes (Hospitalization, Other)
  Sender: MERCK SHARP & DOHME LLC
  Company Number: JP-009507513-2311952

PATIENT
  Age: 53 Year
  Sex: Female

DRUGS (3)
  1. KEYTRUDA [Suspect]
     Active Substance: PEMBROLIZUMAB
     Indication: Triple negative breast cancer
     Route: 041
     Dates: start: 20250326
  2. EPIRUBICIN HYDROCHLORIDE (EC) [Concomitant]
  3. CYCLOPHOSPHAMIDE [Concomitant]
     Active Substance: CYCLOPHOSPHAMIDE

REACTIONS (2)
  - Febrile neutropenia [Recovered/Resolved]
  - Immune-mediated adrenal insufficiency [Recovered/Resolved]

NARRATIVE: CASE EVENT DATE: 20250604
